FAERS Safety Report 8838471 (Version 1)
Quarter: 2012Q4

REPORT INFORMATION
  Report Type: 
  Country: FR (occurrence: FR)
  Receive Date: 20121012
  Receipt Date: 20121012
  Transmission Date: 20130627
  Serious: Yes (Other)
  Sender: FDA-Public Use
  Company Number: PHHY2012FR088582

PATIENT
  Sex: Female

DRUGS (2)
  1. ILARIS [Suspect]
     Indication: MEVALONATE KINASE DEFICIENCY
     Dosage: 2 mg/kg, UNK
     Route: 058
     Dates: start: 201006
  2. ILARIS [Suspect]
     Dosage: 3 mg/kg, UNK
     Route: 058

REACTIONS (4)
  - Tonsillar hypertrophy [Unknown]
  - Ear, nose and throat examination abnormal [Unknown]
  - Pharyngitis [Unknown]
  - Postoperative fever [Unknown]
